FAERS Safety Report 6284281-8 (Version None)
Quarter: 2009Q3

REPORT INFORMATION
  Report Type: 
  Country: None (occurrence: None)
  Receive Date: 20090727
  Receipt Date: 20090715
  Transmission Date: 20100115
  Serious: Yes (Other)
  Sender: FDA-Public Use
  Company Number: PHHY2009JP29533

PATIENT
  Age: 34 Year
  Sex: Female

DRUGS (5)
  1. CYCLOSPORINE [Suspect]
     Indication: RENAL TRANSPLANT
     Dosage: UNK
  2. AZATHIOPRINE [Concomitant]
     Indication: RENAL TRANSPLANT
     Dosage: UNK
  3. METHYLPREDNISOLONE [Concomitant]
     Indication: RENAL TRANSPLANT
     Dosage: 500 MG/DAY
     Route: 042
  4. METHYLPREDNISOLONE [Concomitant]
     Dosage: 300 MG/D
     Route: 042
  5. METHYLPREDNISOLONE [Concomitant]
     Dosage: 0.6 MG/KG/D
     Route: 048

REACTIONS (15)
  - ANTI-NEUTROPHIL CYTOPLASMIC ANTIBODY POSITIVE VASCULITIS [None]
  - CAPILLARITIS [None]
  - CHRONIC ALLOGRAFT NEPHROPATHY [None]
  - COMPLICATIONS OF TRANSPLANTED KIDNEY [None]
  - GLOMERULONEPHRITIS RAPIDLY PROGRESSIVE [None]
  - GLOMERULOSCLEROSIS [None]
  - HAEMATURIA [None]
  - INFLAMMATION [None]
  - KIDNEY FIBROSIS [None]
  - KIDNEY TRANSPLANT REJECTION [None]
  - NECROSIS [None]
  - PROTEINURIA [None]
  - RENAL FAILURE [None]
  - RENAL TUBULAR ATROPHY [None]
  - TUBULOINTERSTITIAL NEPHRITIS [None]
